FAERS Safety Report 19026852 (Version 2)
Quarter: 2021Q2

REPORT INFORMATION
  Report Type: Report from Study
  Country: DE (occurrence: DE)
  Receive Date: 20210318
  Receipt Date: 20210402
  Transmission Date: 20210717
  Serious: Yes (Other)
  Sender: FDA-Public Use
  Company Number: DE-AMERICAN REGENT INC-2021000660

PATIENT
  Age: 57 Year
  Sex: Male
  Weight: 105 kg

DRUGS (3)
  1. FERINJECT [Suspect]
     Active Substance: FERRIC CARBOXYMALTOSE
     Indication: IRON DEFICIENCY ANAEMIA
     Dosage: 1000 MG, WHEN NEEDED
     Dates: start: 20210202
  2. CAPECITABINE. [Concomitant]
     Active Substance: CAPECITABINE
     Indication: PROPHYLAXIS
     Dosage: 500 MILLIGRAM
     Route: 048
     Dates: start: 20210210
  3. METOCLOPRAMIDE. [Concomitant]
     Active Substance: METOCLOPRAMIDE
     Indication: PROPHYLAXIS
     Dosage: 10 MILLIGRAM
     Route: 048
     Dates: start: 20210216

REACTIONS (5)
  - Pyrexia [Recovered/Resolved]
  - Tumour pain [Recovered/Resolved]
  - Abdominal pain [Recovered/Resolved]
  - Hand-foot-and-mouth disease [Recovered/Resolved]
  - Diarrhoea [Recovered/Resolved]

NARRATIVE: CASE EVENT DATE: 20210216
